FAERS Safety Report 8310179-7 (Version None)
Quarter: 2012Q2

REPORT INFORMATION
  Report Type: 
  Country: None (occurrence: None)
  Receive Date: 20120425
  Receipt Date: 20120413
  Transmission Date: 20120825
  Serious: Yes (Hospitalization, Other)
  Sender: FDA-Public Use
  Company Number: US-SANOFI-AVENTIS-2012SA026172

PATIENT
  Age: 81 Year
  Sex: Male
  Weight: 69.85 kg

DRUGS (2)
  1. ANTIBIOTICS [Suspect]
     Indication: GASTROINTESTINAL INFLAMMATION
     Route: 065
  2. PLAVIX [Suspect]
     Indication: STENT PLACEMENT
     Route: 048
     Dates: start: 20111001

REACTIONS (14)
  - DEHYDRATION [None]
  - ABASIA [None]
  - CANDIDIASIS [None]
  - WEIGHT DECREASED [None]
  - BLOOD PRESSURE DECREASED [None]
  - LABORATORY TEST ABNORMAL [None]
  - GASTROINTESTINAL INFLAMMATION [None]
  - DIARRHOEA [None]
  - BLOOD POTASSIUM DECREASED [None]
  - BLOOD IRON DECREASED [None]
  - DECREASED APPETITE [None]
  - RED BLOOD CELL COUNT DECREASED [None]
  - PROTEIN TOTAL DECREASED [None]
  - BLOOD SODIUM DECREASED [None]
